FAERS Safety Report 11119638 (Version 1)
Quarter: 2015Q2

REPORT INFORMATION
  Report Type: Report from Study
  Country: DK (occurrence: DE)
  Receive Date: 20150518
  Receipt Date: 20150518
  Transmission Date: 20150821
  Serious: Yes (Other)
  Sender: FDA-Public Use
  Company Number: DE-FRI-1000076637

PATIENT
  Age: 43 Year
  Sex: Female

DRUGS (12)
  1. AMISULPRIDE [Suspect]
     Active Substance: AMISULPRIDE
     Dosage: UNKNOWN
     Route: 048
  2. ESCITALOPRAM [Suspect]
     Active Substance: ESCITALOPRAM OXALATE
     Dosage: 15 MG
     Route: 048
     Dates: start: 20140826, end: 20140908
  3. AMISULPRIDE [Suspect]
     Active Substance: AMISULPRIDE
     Dosage: 500 MG
     Route: 048
     Dates: start: 20140821, end: 20140821
  4. AMISULPRIDE [Suspect]
     Active Substance: AMISULPRIDE
     Dosage: 150 MG
     Route: 048
     Dates: start: 20140901, end: 20140901
  5. AMISULPRIDE [Suspect]
     Active Substance: AMISULPRIDE
     Dosage: 600 MG
     Route: 048
     Dates: start: 20140822, end: 20140827
  6. AMISULPRIDE [Suspect]
     Active Substance: AMISULPRIDE
     Dosage: 300 MG
     Route: 048
     Dates: start: 20140829, end: 20140831
  7. ESCITALOPRAM [Suspect]
     Active Substance: ESCITALOPRAM OXALATE
     Indication: PRODUCT USED FOR UNKNOWN INDICATION
     Dosage: 5 MG
     Route: 048
     Dates: start: 20140819, end: 20140820
  8. ESCITALOPRAM [Suspect]
     Active Substance: ESCITALOPRAM OXALATE
     Dosage: 15 MG
     Route: 048
     Dates: start: 20140913
  9. ESCITALOPRAM [Suspect]
     Active Substance: ESCITALOPRAM OXALATE
     Dosage: 10 MG
     Route: 048
     Dates: start: 20140821, end: 20140825
  10. ESCITALOPRAM [Suspect]
     Active Substance: ESCITALOPRAM OXALATE
     Dosage: 20 MG
     Route: 048
     Dates: start: 20140909, end: 20140912
  11. AMISULPRIDE [Suspect]
     Active Substance: AMISULPRIDE
     Indication: PRODUCT USED FOR UNKNOWN INDICATION
     Dosage: 400 MG
     Route: 048
     Dates: start: 20140820, end: 20140820
  12. AMISULPRIDE [Suspect]
     Active Substance: AMISULPRIDE
     Dosage: 450 MG
     Route: 048
     Dates: start: 20140828, end: 20140828

REACTIONS (1)
  - Head titubation [Recovered/Resolved]

NARRATIVE: CASE EVENT DATE: 20140828
